FAERS Safety Report 11418652 (Version 2)
Quarter: 2018Q2

REPORT INFORMATION
  Report Type: Spontaneous
  Country: US (occurrence: US)
  Receive Date: 20150826
  Receipt Date: 20180626
  Transmission Date: 20180711
  Serious: No
  Sender: FDA-Public Use
  Company Number: US-ASTRAZENECA-2015SE34629

PATIENT
  Sex: Female

DRUGS (1)
  1. BYDUREON [Suspect]
     Active Substance: EXENATIDE
     Route: 058

REACTIONS (12)
  - Skin atrophy [Unknown]
  - Incorrect dose administered [Unknown]
  - Extra dose administered [Unknown]
  - Product storage error [Unknown]
  - Intentional device misuse [Unknown]
  - Device malfunction [Unknown]
  - Device leakage [Unknown]
  - Panic reaction [Unknown]
  - Fear [Unknown]
  - Injection site nodule [Unknown]
  - Injection site extravasation [Unknown]
  - Drug dose omission [Unknown]
